FAERS Safety Report 10867537 (Version 1)
Quarter: 2015Q1

REPORT INFORMATION
  Report Type: Spontaneous
  Country: CN (occurrence: CN)
  Receive Date: 20150225
  Receipt Date: 20150225
  Transmission Date: 20150721
  Serious: Yes (Other)
  Sender: FDA-Public Use
  Company Number: CN-MYLANLABS-2015M1005919

PATIENT

DRUGS (1)
  1. WARFARIN [Suspect]
     Active Substance: WARFARIN
     Route: 065

REACTIONS (4)
  - Overdose [Recovered/Resolved]
  - Small intestinal obstruction [Recovered/Resolved]
  - Toxicity to various agents [Recovered/Resolved]
  - Intestinal haematoma [Recovered/Resolved]
